FAERS Safety Report 7318546-5 (Version None)
Quarter: 2011Q1

REPORT INFORMATION
  Report Type: 
  Country: None (occurrence: None)
  Receive Date: 20110228
  Receipt Date: 20110224
  Transmission Date: 20110831
  Serious: No
  Sender: FDA-Public Use
  Company Number: US-PFIZER INC-2011041416

PATIENT
  Sex: Female
  Weight: 64.4 kg

DRUGS (4)
  1. ATIVAN [Concomitant]
     Indication: ANXIETY
     Dosage: 0.5 MG, 1X/DAY
     Route: 048
  2. SOMA [Concomitant]
     Indication: MUSCLE RELAXANT THERAPY
     Dosage: 350 MG, 3X/DAY
     Route: 048
  3. NEURONTIN [Concomitant]
     Indication: ANALGESIC THERAPY
     Dosage: UNK
  4. CHANTIX [Suspect]
     Indication: SMOKING CESSATION THERAPY
     Dosage: 0.5 MG, 1X/DAY
     Route: 048
     Dates: start: 20110217

REACTIONS (1)
  - BACK PAIN [None]
